FAERS Safety Report 8530473-4 (Version None)
Quarter: 2012Q3

REPORT INFORMATION
  Report Type: 
  Country: None (occurrence: None)
  Receive Date: 20120723
  Receipt Date: 20120717
  Transmission Date: 20120928
  Serious: No
  Sender: FDA-Public Use
  Company Number: US-PFIZER INC-2012173589

PATIENT
  Sex: Male
  Weight: 102 kg

DRUGS (3)
  1. FISH OIL [Concomitant]
     Indication: BLOOD TRIGLYCERIDES INCREASED
     Dosage: UNK
  2. EFFEXOR XR [Suspect]
     Indication: AFFECTIVE DISORDER
     Dosage: 150 MG, DAILY
     Route: 048
     Dates: start: 20100701, end: 20120101
  3. EFFEXOR XR [Suspect]
     Indication: BIPOLAR DISORDER
     Dosage: 150 MG, DAILY
     Route: 048
     Dates: start: 20120301

REACTIONS (10)
  - BLOOD TRIGLYCERIDES INCREASED [None]
  - HEADACHE [None]
  - BLOOD GLUCOSE INCREASED [None]
  - LOW DENSITY LIPOPROTEIN INCREASED [None]
  - HIGH DENSITY LIPOPROTEIN DECREASED [None]
  - BLOOD CHOLESTEROL INCREASED [None]
  - COUNTERFEIT DRUG ADMINISTERED [None]
  - ALANINE AMINOTRANSFERASE INCREASED [None]
  - GLYCOSYLATED HAEMOGLOBIN INCREASED [None]
  - VERY LOW DENSITY LIPOPROTEIN INCREASED [None]
